FAERS Safety Report 15888674 (Version 1)
Quarter: 2019Q1

REPORT INFORMATION
  Report Type: Spontaneous
  Country: CA (occurrence: CA)
  Receive Date: 20190129
  Receipt Date: 20190129
  Transmission Date: 20190417
  Serious: Yes (Disabling)
  Sender: FDA-Public Use
  Company Number: None

PATIENT
  Age: 63 Year
  Sex: Female
  Weight: 76.5 kg

DRUGS (12)
  1. GLUCOSAMINE CHONDROITINE [Concomitant]
  2. VITAMIN D [Concomitant]
     Active Substance: CHOLECALCIFEROL
  3. CIPROFLOXACIN 500 MG TABLET [Suspect]
     Active Substance: CIPROFLOXACIN
     Indication: APPENDICITIS PERFORATED
     Route: 048
     Dates: start: 20170120, end: 20170125
  4. CLONAZEPAM. [Concomitant]
     Active Substance: CLONAZEPAM
  5. GARLIC. [Concomitant]
     Active Substance: GARLIC
  6. VITAMIN C [Concomitant]
     Active Substance: ASCORBIC ACID
  7. MELATONIN [Concomitant]
     Active Substance: MELATONIN
  8. CIPROFLOXACIN 500 MG TABLET [Suspect]
     Active Substance: CIPROFLOXACIN
     Indication: INFECTION
     Route: 048
     Dates: start: 20170120, end: 20170125
  9. VITAMIN B [Concomitant]
     Active Substance: VITAMIN B
  10. CALCIUM CITRATE [Concomitant]
     Active Substance: CALCIUM CITRATE
  11. AMITRIPTYLINE [Concomitant]
     Active Substance: AMITRIPTYLINE
  12. MAGNESIUM CITRATE. [Concomitant]
     Active Substance: MAGNESIUM CITRATE

REACTIONS (22)
  - Asthenia [None]
  - Anxiety [None]
  - Constipation [None]
  - Diarrhoea [None]
  - Back pain [None]
  - Tinnitus [None]
  - Arthralgia [None]
  - Fatigue [None]
  - Neuropathy peripheral [None]
  - Neck pain [None]
  - Depression [None]
  - Heart rate increased [None]
  - Chondrocalcinosis [None]
  - General physical health deterioration [None]
  - Appendicitis perforated [None]
  - Depressed level of consciousness [None]
  - Amnesia [None]
  - Arrhythmia [None]
  - Osteoarthritis [None]
  - Abdominal pain [None]
  - Intervertebral disc degeneration [None]
  - Myalgia [None]

NARRATIVE: CASE EVENT DATE: 20170116
